FAERS Safety Report 8615972-9 (Version None)
Quarter: 2012Q3

REPORT INFORMATION
  Report Type: 
  Country: None (occurrence: None)
  Receive Date: 20120823
  Receipt Date: 20120818
  Transmission Date: 20120928
  Serious: Yes (Hospitalization)
  Sender: FDA-Public Use
  Company Number: US-PFIZER INC-2012202380

PATIENT
  Age: 60 Year
  Sex: Male
  Weight: 71 kg

DRUGS (3)
  1. BLINDED NO SUBJECT DRUG [Suspect]
     Indication: SMALL CELL LUNG CANCER STAGE UNSPECIFIED
     Dosage: 150 MG, PO ON DAY 1 THEN 37.5 MG, 1X/DAY UNTIL PROGRESSION
     Route: 048
     Dates: end: 20120702
  2. SUNITINIB MALATE [Suspect]
     Indication: SMALL CELL LUNG CANCER STAGE UNSPECIFIED
     Dosage: 150 MG, PO ON DAY 1 THEN 37.5 MG, 1X/DAY UNTIL PROGRESSION
     Route: 048
     Dates: end: 20120702
  3. PLACEBO [Suspect]
     Indication: SMALL CELL LUNG CANCER STAGE UNSPECIFIED
     Dosage: 150 MG, PO ON DAY 1 THEN 37.5 MG, 1X/DAY UNTIL PROGRESSION
     Route: 048
     Dates: end: 20120702

REACTIONS (2)
  - DEHYDRATION [None]
  - DECREASED APPETITE [None]
